FAERS Safety Report 4673858-9 (Version None)
Quarter: 2005Q2

REPORT INFORMATION
  Report Type: 
  Country: None (occurrence: None)
  Receive Date: 20050525
  Receipt Date: 20050512
  Transmission Date: 20051028
  Serious: Yes (Other)
  Sender: FDA-Public Use
  Company Number: ES-MERCK-0505ESP00019

PATIENT
  Age: 76 Year
  Sex: Female

DRUGS (5)
  1. SINGULAIR [Suspect]
     Indication: ASTHMA
     Route: 048
     Dates: start: 20050101, end: 20050101
  2. SINGULAIR [Suspect]
     Route: 048
     Dates: start: 20040101, end: 20040101
  3. CORTICOSTEROIDS (UNSPECIFIED) [Concomitant]
     Indication: ASTHMA
     Route: 055
  4. FOSAMAX [Concomitant]
     Indication: PROPHYLAXIS
     Route: 048
  5. NONSTEROIDAL ANTI-INFLAMMATORY DRUG (UNSPECIFIED) [Concomitant]
     Route: 065

REACTIONS (2)
  - HAEMATOMA [None]
  - THROMBOPHLEBITIS SUPERFICIAL [None]
